FAERS Safety Report 18090942 (Version 1)
Quarter: 2020Q3

REPORT INFORMATION
  Report Type: Spontaneous
  Country: US (occurrence: US)
  Receive Date: 20200729
  Receipt Date: 20200729
  Transmission Date: 20201103
  Serious: Yes (Disabling)
  Sender: FDA-Public Use
  Company Number: None

PATIENT
  Age: 35 Year
  Sex: Female

DRUGS (1)
  1. ASSURED INSTANT HAND SANITIZER VITAMIN E AND ALOE [Suspect]
     Active Substance: ALCOHOL
     Indication: INFECTION PROPHYLAXIS
     Route: 061
     Dates: start: 20200313, end: 20200412

REACTIONS (5)
  - Asthenopia [None]
  - Macular fibrosis [None]
  - Ocular discomfort [None]
  - Blindness [None]
  - Vision blurred [None]

NARRATIVE: CASE EVENT DATE: 20200327
